FAERS Safety Report 16263233 (Version 4)
Quarter: 2025Q4

REPORT INFORMATION
  Report Type: Spontaneous
  Country: EU (occurrence: EU)
  Receive Date: 20190502
  Receipt Date: 20251222
  Transmission Date: 20260117
  Serious: Yes (Hospitalization)
  Sender: AUROBINDO
  Company Number: EU-AUROBINDO-AUR-APL-2019-023383

PATIENT
  Age: 69 Year
  Sex: Male

DRUGS (13)
  1. VORICONAZOLE [Interacting]
     Active Substance: VORICONAZOLE
     Indication: Bronchopulmonary aspergillosis
     Dosage: 300 MILLIGRAM, TWO TIMES A DAY
  2. VORICONAZOLE [Interacting]
     Active Substance: VORICONAZOLE
     Indication: Acute respiratory distress syndrome
     Dosage: 350 MILLIGRAM, TWO TIMES A DAY
  3. VORICONAZOLE [Interacting]
     Active Substance: VORICONAZOLE
     Dosage: 600 MILLIGRAM, ONCE A DAY
  4. VORICONAZOLE [Interacting]
     Active Substance: VORICONAZOLE
     Dosage: 300 MILLIGRAM, ONCE A DAY
  5. VORICONAZOLE [Interacting]
     Active Substance: VORICONAZOLE
     Dosage: 300 MILLIGRAM, 0.5 DAYS
  6. METHYLPREDNISOLONE [Interacting]
     Active Substance: METHYLPREDNISOLONE
     Indication: Brain oedema
     Dosage: UNK
     Route: 065
  7. METHYLPREDNISOLONE [Interacting]
     Active Substance: METHYLPREDNISOLONE
     Indication: Cerebral aspergillosis
  8. IBRUTINIB [Interacting]
     Active Substance: IBRUTINIB
     Indication: Brain oedema
     Dosage: UNK
     Route: 065
  9. ISAVUCONAZOLE [Interacting]
     Active Substance: ISAVUCONAZOLE
     Indication: Aspergillus infection
     Dosage: 300 MILLIGRAM, ONCE A DAY
     Route: 065
  10. ISAVUCONAZOLE [Interacting]
     Active Substance: ISAVUCONAZOLE
     Indication: Bronchopulmonary aspergillosis
  11. ISAVUCONAZOLE [Interacting]
     Active Substance: ISAVUCONAZOLE
     Indication: Cerebral aspergillosis
  12. AMPHOTERICIN B [Concomitant]
     Active Substance: AMPHOTERICIN B
     Indication: Aspergillus infection
     Dosage: ONCE A DAY
     Route: 065
  13. IMMUNGLOBULIN [Concomitant]
     Indication: Chronic lymphocytic leukaemia
     Dosage: UNK
     Route: 065

REACTIONS (3)
  - Drug level below therapeutic [Recovered/Resolved]
  - Drug interaction [Recovered/Resolved]
  - Drug level decreased [Recovered/Resolved]
